FAERS Safety Report 8043032-7 (Version None)
Quarter: 2012Q1

REPORT INFORMATION
  Report Type: 
  Country: None (occurrence: None)
  Receive Date: 20120112
  Receipt Date: 20120106
  Transmission Date: 20120608
  Serious: Yes (Other)
  Sender: FDA-Public Use
  Company Number: PHEH2011US011761

PATIENT
  Sex: Male
  Weight: 87.8 kg

DRUGS (9)
  1. AMITRIPTYLINE HCL [Concomitant]
     Dosage: 2 DF, QHS
  2. ACETAMINOPHEN AND HYDROCODONE BITARTRATE [Concomitant]
     Indication: PAIN
     Dosage: 1 DF, PRN (325MG-10 MG)
     Route: 048
  3. BACLOFEN [Concomitant]
     Dosage: 10 MG, QID
     Route: 048
  4. DOXAZOSIN MESYLATE [Concomitant]
     Dosage: 1 DF, QD
     Route: 048
  5. GILENYA [Suspect]
     Indication: RELAPSING-REMITTING MULTIPLE SCLEROSIS
     Dosage: 0.5 MG, QD
     Route: 048
     Dates: start: 20110630, end: 20111223
  6. METHADONE HYDROCHLORIDE [Concomitant]
     Dosage: 1 DF, Q12H
     Route: 048
  7. LYRICA [Concomitant]
     Dosage: 1 DF, BID
     Route: 048
  8. VIAGRA [Concomitant]
     Dosage: 1 DF, UNK
     Route: 048
  9. MORPHINE [Concomitant]
     Dosage: 1 DF, BID
     Route: 048

REACTIONS (9)
  - MYOCARDIAL INFARCTION [None]
  - DIASTOLIC DYSFUNCTION [None]
  - RIGHT VENTRICULAR SYSTOLIC PRESSURE INCREASED [None]
  - HYPOXIA [None]
  - CHEST DISCOMFORT [None]
  - DYSPNOEA [None]
  - CHEST PAIN [None]
  - ELECTROCARDIOGRAM Q WAVES [None]
  - LEFT VENTRICULAR DYSFUNCTION [None]
